FAERS Safety Report 16082492 (Version 1)
Quarter: 2019Q1

REPORT INFORMATION
  Report Type: Spontaneous
  Country: US (occurrence: US)
  Receive Date: 20190318
  Receipt Date: 20190318
  Transmission Date: 20190418
  Serious: Yes (Other)
  Sender: FDA-Public Use
  Company Number: US-LUPIN PHARMACEUTICALS INC.-2018-08059

PATIENT

DRUGS (1)
  1. SUPRAX [Suspect]
     Active Substance: CEFIXIME
     Indication: ESCHERICHIA INFECTION
     Dosage: UNKNOWN
     Route: 065

REACTIONS (2)
  - Escherichia infection [Unknown]
  - Disease recurrence [None]
